FAERS Safety Report 9635719 (Version 3)
Quarter: 2013Q4

REPORT INFORMATION
  Report Type: Spontaneous
  Country: JP (occurrence: JP)
  Receive Date: 20131021
  Receipt Date: 20131120
  Transmission Date: 20140711
  Serious: Yes (Hospitalization)
  Sender: FDA-Public Use
  Company Number: JP-GLAXOSMITHKLINE-B0932244A

PATIENT
  Age: 72 Year
  Sex: Female

DRUGS (9)
  1. LAMICTAL [Suspect]
     Indication: BIPOLAR DISORDER
     Dosage: 25MG PER DAY
     Route: 048
     Dates: start: 20130625, end: 20130812
  2. MAGLAX [Concomitant]
     Indication: CONSTIPATION
     Dosage: 500MG THREE TIMES PER DAY
     Route: 048
     Dates: start: 20130625, end: 20130813
  3. QUETIAPINE [Concomitant]
     Indication: MANIA
     Dosage: 50MG THREE TIMES PER DAY
     Route: 048
     Dates: start: 20130625, end: 20130813
  4. AKINETON [Concomitant]
     Indication: MANIA
     Dosage: 1MG THREE TIMES PER DAY
     Route: 048
     Dates: start: 20130625, end: 20130813
  5. BARNETIL [Concomitant]
     Indication: MANIA
     Dosage: 100MG THREE TIMES PER DAY
     Route: 048
     Dates: start: 20130625, end: 20130813
  6. RISPERDAL [Concomitant]
     Indication: INSOMNIA
     Dosage: 1MG PER DAY
     Route: 048
     Dates: start: 20130625, end: 20130813
  7. VEGETAMIN A [Concomitant]
     Indication: INSOMNIA
     Dosage: 2IUAX PER DAY
     Route: 048
     Dates: start: 20130625, end: 20130813
  8. FUROSEMIDE [Concomitant]
     Indication: OEDEMA
     Dosage: 20MG PER DAY
     Route: 048
     Dates: start: 20130625, end: 20130813
  9. LANSOPRAZOLE [Concomitant]
     Indication: GASTRIC ULCER
     Dosage: 15MG PER DAY
     Route: 048
     Dates: start: 20130625, end: 20130813

REACTIONS (3)
  - Drug reaction with eosinophilia and systemic symptoms [Recovered/Resolved]
  - Pyrexia [Recovering/Resolving]
  - Rash generalised [Recovering/Resolving]
